FAERS Safety Report 8352006-8 (Version None)
Quarter: 2012Q2

REPORT INFORMATION
  Report Type: 
  Country: None (occurrence: None)
  Receive Date: 20120509
  Receipt Date: 20120427
  Transmission Date: 20120825
  Serious: No
  Sender: FDA-Public Use
  Company Number: 2012P1019620

PATIENT

DRUGS (1)
  1. CEFTAZIDIME [Suspect]
     Dosage: IV
     Route: 042

REACTIONS (3)
  - WHITE BLOOD CELL COUNT DECREASED [None]
  - ANAEMIA [None]
  - DIALYSIS [None]
